FAERS Safety Report 21995471 (Version 1)
Quarter: 2023Q1

REPORT INFORMATION
  Report Type: Spontaneous
  Country: US (occurrence: US)
  Receive Date: 20230215
  Receipt Date: 20230215
  Transmission Date: 20230417
  Serious: No
  Sender: FDA-Public Use
  Company Number: US-SA-SAC20230213001460

PATIENT
  Age: 39 Year
  Sex: Male

DRUGS (3)
  1. DUPIXENT [Suspect]
     Active Substance: DUPILUMAB
     Dosage: 300 MG, UNK
     Route: 058
  2. TYLENOL [Concomitant]
     Active Substance: ACETAMINOPHEN
  3. MOTRIN [Concomitant]
     Active Substance: IBUPROFEN

REACTIONS (2)
  - Influenza [Not Recovered/Not Resolved]
  - Illness [Not Recovered/Not Resolved]
